FAERS Safety Report 15472356 (Version 2)
Quarter: 2018Q4

REPORT INFORMATION
  Report Type: Spontaneous
  Country: GR (occurrence: GR)
  Receive Date: 20181008
  Receipt Date: 20181026
  Transmission Date: 20190205
  Serious: Yes (Hospitalization)
  Sender: FDA-Public Use
  Company Number: GR-UCBSA-2018044246

PATIENT
  Age: 14 Year
  Sex: Male

DRUGS (3)
  1. ACETAZOLAMIDE. [Concomitant]
     Active Substance: ACETAZOLAMIDE
     Indication: PRODUCT USED FOR UNKNOWN INDICATION
     Dosage: UNKNOWN DOSE
  2. WARFARIN [Concomitant]
     Active Substance: WARFARIN
     Indication: EPILEPSY
     Dosage: UNKNOWN DOSE
  3. LEVETIRACETAM. [Suspect]
     Active Substance: LEVETIRACETAM
     Indication: EPILEPSY
     Dosage: UNKNOWN DOSE

REACTIONS (18)
  - Confusional state [Unknown]
  - Coordination abnormal [Unknown]
  - Gaze palsy [Unknown]
  - Dizziness [Unknown]
  - Dyskinesia [Unknown]
  - Nystagmus [Unknown]
  - Hallucination, visual [Unknown]
  - Hyporeflexia [Unknown]
  - Sensory loss [Unknown]
  - Gait disturbance [Unknown]
  - Headache [Unknown]
  - Pyrexia [Unknown]
  - Facial paralysis [Unknown]
  - Photophobia [Unknown]
  - Vomiting [Unknown]
  - Musculoskeletal stiffness [Unknown]
  - Transient ischaemic attack [Unknown]
  - Irritability [Unknown]
